FAERS Safety Report 7059539-5 (Version None)
Quarter: 2010Q4

REPORT INFORMATION
  Report Type: 
  Country: None (occurrence: None)
  Receive Date: 20101025
  Receipt Date: 20101011
  Transmission Date: 20110411
  Serious: Yes (Hospitalization, Other)
  Sender: FDA-Public Use
  Company Number: PHHY2010DE69689

PATIENT
  Age: 60 Year
  Sex: Female
  Weight: 63 kg

DRUGS (5)
  1. DIOVAN HCT [Suspect]
     Dosage: 80/12.5 MG, 1 DF
     Route: 048
     Dates: start: 20091204, end: 20100326
  2. DIOVAN [Suspect]
     Dosage: 160 MG(HALF TABLET A DAY)
     Route: 048
     Dates: start: 20091204, end: 20100326
  3. ASPIRIN [Suspect]
     Dosage: 100 MG, BID
     Route: 048
     Dates: start: 20030101, end: 20100319
  4. ASPIRIN [Suspect]
     Dosage: 100 MG
     Route: 048
     Dates: start: 20100525, end: 20100713
  5. VOLTAREN [Concomitant]
     Indication: ARTHRALGIA
     Dosage: NEARLY EVERY SECOND DAY,SOMETIMES 3 DAYS IN SUCCESSION
     Route: 003
     Dates: start: 20080101, end: 20100706

REACTIONS (5)
  - AUTOIMMUNE HEPATITIS [None]
  - HEPATITIS [None]
  - HEPATITIS ACUTE [None]
  - PRURITUS GENERALISED [None]
  - TRANSAMINASES INCREASED [None]
